FAERS Safety Report 6517121-X (Version None)
Quarter: 2009Q4

REPORT INFORMATION
  Report Type: 
  Country: None (occurrence: None)
  Receive Date: 20091223
  Receipt Date: 20091214
  Transmission Date: 20100525
  Serious: Yes (Other)
  Sender: FDA-Public Use
  Company Number: US-ELI_LILLY_AND_COMPANY-US200911006480

PATIENT
  Age: 45 Year
  Sex: Female

DRUGS (3)
  1. CYMBALTA [Suspect]
     Indication: FIBROMYALGIA
     Dosage: 30 MG, DAILY (1/D)
     Route: 065
     Dates: start: 20090101, end: 20091101
  2. LISINOPRIL [Concomitant]
     Dosage: UNK, UNKNOWN
     Route: 065
  3. LYRICA [Concomitant]
     Dosage: UNK, UNKNOWN
     Route: 065

REACTIONS (1)
  - RENAL FAILURE [None]
